APPROVED DRUG PRODUCT: LIBRELEASE
Active Ingredient: CHLORDIAZEPOXIDE
Strength: 30MG
Dosage Form/Route: CAPSULE, EXTENDED RELEASE;ORAL
Application: N017813 | Product #001
Applicant: VALEANT PHARMACEUTICALS INTERNATIONAL
Approved: Sep 12, 1983 | RLD: No | RS: No | Type: DISCN